FAERS Safety Report 9575270 (Version 2)
Quarter: 2013Q4

REPORT INFORMATION
  Report Type: Spontaneous
  Country: JP (occurrence: JP)
  Receive Date: 20131001
  Receipt Date: 20131112
  Transmission Date: 20140711
  Serious: Yes (Hospitalization)
  Sender: FDA-Public Use
  Company Number: JP-009507513-1310JPN000206

PATIENT
  Age: 84 Year
  Sex: Male

DRUGS (8)
  1. FOSAMAC TABLETS 35MG [Suspect]
     Indication: OSTEOPOROSIS
     Dosage: 35 MG, QW
     Route: 048
     Dates: start: 20130809, end: 20130927
  2. FOSAMAC TABLETS 35MG [Suspect]
     Dosage: 35 MG, QW
     Route: 048
     Dates: start: 20090629, end: 20130626
  3. CALFINA [Concomitant]
     Dosage: DAILY DOSAGE UNKNOWN
     Route: 048
  4. LANSOPRAZOLE [Concomitant]
     Dosage: DAILY DOSAGE UNKNOWN
     Route: 048
  5. METGLUCO [Concomitant]
     Dosage: DAILY DOSAGE UNKNOWN
     Route: 048
  6. VOGLIBOSE [Concomitant]
     Indication: DIABETES MELLITUS
     Dosage: DAILY DOSAGE UNKNOWN, TID
     Route: 048
  7. TOUCHRON [Concomitant]
     Dosage: DAILY DOSAGE UNKNOWN
  8. FLIVAS [Concomitant]
     Indication: BENIGN PROSTATIC HYPERPLASIA
     Dosage: DAILY DOSAGE UNKNOWN
     Route: 048

REACTIONS (2)
  - Primary sequestrum [Not Recovered/Not Resolved]
  - Tooth extraction [Unknown]
